FAERS Safety Report 9199497 (Version 1)
Quarter: 2013Q1

REPORT INFORMATION
  Report Type: Spontaneous
  Country: US (occurrence: US)
  Receive Date: 20130329
  Receipt Date: 20130329
  Transmission Date: 20140127
  Serious: No
  Sender: FDA-Public Use
  Company Number: US-TEVA-394965USA

PATIENT
  Sex: Female
  Weight: 86.26 kg

DRUGS (5)
  1. NUVIGIL [Suspect]
     Dosage: 250 MILLIGRAM DAILY;
     Route: 048
     Dates: start: 20130131
  2. FLUOXETINE [Concomitant]
     Indication: DEPRESSION
  3. CYMBALTA [Concomitant]
     Indication: DEPRESSION
  4. VALSARTAN [Concomitant]
     Indication: CARDIOMYOPATHY
  5. CARVEDILOL [Concomitant]
     Indication: CARDIOMYOPATHY

REACTIONS (2)
  - Drug ineffective [Unknown]
  - Adverse event [Unknown]
